FAERS Safety Report 20177719 (Version 3)
Quarter: 2023Q1

REPORT INFORMATION
  Report Type: Spontaneous
  Country: US (occurrence: US)
  Receive Date: 20211213
  Receipt Date: 20230302
  Transmission Date: 20230417
  Serious: Yes (Hospitalization)
  Sender: FDA-Public Use
  Company Number: US-SA-SAC20211208001366

PATIENT

DRUGS (1)
  1. TAXOTERE [Suspect]
     Active Substance: DOCETAXEL
     Dosage: UNK

REACTIONS (4)
  - Rash [Recovering/Resolving]
  - Pyrexia [Recovered/Resolved]
  - Hyponatraemia [Recovering/Resolving]
  - Rash maculo-papular [Recovered/Resolved]
